FAERS Safety Report 5418338-8 (Version None)
Quarter: 2007Q3

REPORT INFORMATION
  Report Type: 
  Country: None (occurrence: None)
  Receive Date: 20070817
  Receipt Date: 20070807
  Transmission Date: 20080115
  Serious: Yes (Other)
  Sender: FDA-Public Use
  Company Number: TH-JNJFOC-20070801336

PATIENT
  Sex: Female
  Weight: 48 kg

DRUGS (2)
  1. DARUNAVIR [Suspect]
     Route: 048
  2. DARUNAVIR [Suspect]
     Indication: HIV INFECTION
     Route: 048

REACTIONS (2)
  - LIP SWELLING [None]
  - RASH MACULO-PAPULAR [None]
